FAERS Safety Report 8205761-1 (Version None)
Quarter: 2012Q1

REPORT INFORMATION
  Report Type: 
  Country: None (occurrence: None)
  Receive Date: 20120313
  Receipt Date: 20120308
  Transmission Date: 20120608
  Serious: Yes (Other)
  Sender: FDA-Public Use
  Company Number: US-PFIZER INC-2012063586

PATIENT
  Sex: Female
  Weight: 81.633 kg

DRUGS (1)
  1. PRISTIQ [Suspect]
     Indication: DEPRESSION
     Dosage: 100 MG, UNK
     Route: 048
     Dates: end: 20120101

REACTIONS (2)
  - MALAISE [None]
  - DEPRESSION [None]
